FAERS Safety Report 10729856 (Version 3)
Quarter: 2015Q1

REPORT INFORMATION
  Report Type: Report from Study
  Country: US (occurrence: US)
  Receive Date: 20150122
  Receipt Date: 20150225
  Transmission Date: 20150721
  Serious: Yes (Other)
  Sender: FDA-Public Use
  Company Number: US-BEH-2015047969

PATIENT
  Age: 74 Year
  Sex: Female

DRUGS (1)
  1. ZEMAIRA [Suspect]
     Active Substance: .ALPHA.1-PROTEINASE INHIBITOR HUMAN
     Dosage: START DATE: MAY-2014, 4 VIALS PER WEEK

REACTIONS (2)
  - Retinal detachment [Recovered/Resolved]
  - Retinal detachment [Recovering/Resolving]

NARRATIVE: CASE EVENT DATE: 20141224
